FAERS Safety Report 4478292-2 (Version None)
Quarter: 2004Q4

REPORT INFORMATION
  Report Type: 
  Country: None (occurrence: None)
  Receive Date: 20041019
  Receipt Date: 20040921
  Transmission Date: 20050328
  Serious: Yes (Hospitalization)
  Sender: FDA-Public Use
  Company Number: JP-ROCHE-381061

PATIENT
  Age: 37 Year
  Sex: Female
  Weight: 49.6 kg

DRUGS (1)
  1. ROCEPHIN [Suspect]
     Dosage: ADMINISTERED WITH 20 ML SALINE FOR 1 MINUTE (EST)
     Route: 042
     Dates: start: 20040917, end: 20040917

REACTIONS (2)
  - ANAPHYLACTIC SHOCK [None]
  - DEPRESSED LEVEL OF CONSCIOUSNESS [None]
